FAERS Safety Report 26171473 (Version 1)
Quarter: 2025Q4

REPORT INFORMATION
  Report Type: Spontaneous
  Country: JP (occurrence: JP)
  Receive Date: 20251217
  Receipt Date: 20251217
  Transmission Date: 20260117
  Serious: Yes (Hospitalization, Other)
  Sender: PFIZER
  Company Number: None

PATIENT
  Age: 13 Year
  Sex: Male
  Weight: 37 kg

DRUGS (47)
  1. SOLU-MEDROL [Suspect]
     Active Substance: METHYLPREDNISOLONE SODIUM SUCCINATE
     Indication: Prophylaxis against transplant rejection
     Dosage: 500 MG
     Route: 042
     Dates: start: 20250718, end: 20250718
  2. SOLU-MEDROL [Suspect]
     Active Substance: METHYLPREDNISOLONE SODIUM SUCCINATE
     Dosage: 500 MG
     Route: 042
     Dates: start: 20250719, end: 20250719
  3. SOLU-MEDROL [Suspect]
     Active Substance: METHYLPREDNISOLONE SODIUM SUCCINATE
     Dosage: 330 MG
     Route: 042
     Dates: start: 20250720, end: 20250720
  4. SOLU-MEDROL [Suspect]
     Active Substance: METHYLPREDNISOLONE SODIUM SUCCINATE
     Dosage: 200 MG
     Route: 042
     Dates: start: 20250721, end: 20250721
  5. SOLU-MEDROL [Suspect]
     Active Substance: METHYLPREDNISOLONE SODIUM SUCCINATE
     Dosage: 125 MG
     Route: 042
     Dates: start: 20250722, end: 20250722
  6. SOLU-MEDROL [Suspect]
     Active Substance: METHYLPREDNISOLONE SODIUM SUCCINATE
     Dosage: 80 MG
     Route: 042
     Dates: start: 20250723, end: 20250723
  7. SOLU-MEDROL [Suspect]
     Active Substance: METHYLPREDNISOLONE SODIUM SUCCINATE
     Dosage: 200 MG
     Route: 042
     Dates: start: 20250724, end: 20250724
  8. SOLU-MEDROL [Suspect]
     Active Substance: METHYLPREDNISOLONE SODIUM SUCCINATE
     Dosage: 250 MG
     Route: 042
     Dates: start: 20250725, end: 20250725
  9. SOLU-MEDROL [Suspect]
     Active Substance: METHYLPREDNISOLONE SODIUM SUCCINATE
     Dosage: 200 MG
     Route: 042
     Dates: start: 20250726, end: 20250726
  10. MEDROL [Suspect]
     Active Substance: METHYLPREDNISOLONE
     Indication: Prophylaxis against transplant rejection
     Dosage: 20 MG
     Route: 048
     Dates: start: 20250727, end: 20250731
  11. MEDROL [Suspect]
     Active Substance: METHYLPREDNISOLONE
     Dosage: 16 MG
     Route: 048
     Dates: start: 20250801, end: 20250801
  12. MEDROL [Suspect]
     Active Substance: METHYLPREDNISOLONE
     Dosage: 16 MG
     Route: 048
     Dates: start: 20250804, end: 20250804
  13. MEDROL [Suspect]
     Active Substance: METHYLPREDNISOLONE
     Dosage: 12 MG
     Route: 048
     Dates: start: 20250806, end: 20250810
  14. MEDROL [Suspect]
     Active Substance: METHYLPREDNISOLONE
     Dosage: 8 MG
     Route: 048
     Dates: start: 20250811, end: 20250815
  15. MEDROL [Suspect]
     Active Substance: METHYLPREDNISOLONE
     Dosage: 4 MG
     Route: 048
     Dates: start: 20250816, end: 20250820
  16. MEDROL [Suspect]
     Active Substance: METHYLPREDNISOLONE
     Dosage: 4 MG EVERY OTHER DAY
     Route: 048
     Dates: start: 20250820
  17. MEDROL [Suspect]
     Active Substance: METHYLPREDNISOLONE
     Dosage: 4 MG EVERY OTHER DAY
     Route: 048
     Dates: start: 20250828
  18. PROGRAF [Suspect]
     Active Substance: TACROLIMUS
     Indication: Prophylaxis against transplant rejection
     Dosage: 1.5-5.5 MG, 2X/DAY
     Route: 048
     Dates: start: 20250718
  19. PROGRAF [Suspect]
     Active Substance: TACROLIMUS
     Indication: Prophylaxis against transplant rejection
     Dosage: 1.5-5.5 MG, 2X/DAY
     Route: 048
     Dates: start: 20250718
  20. CELLCEPT [Concomitant]
     Active Substance: MYCOPHENOLATE MOFETIL
     Dosage: 750 MG, DAILY
     Route: 065
     Dates: start: 20250719, end: 20250719
  21. CELLCEPT [Concomitant]
     Active Substance: MYCOPHENOLATE MOFETIL
     Dosage: 1000 MG
     Route: 065
     Dates: start: 20250720, end: 20250720
  22. CELLCEPT [Concomitant]
     Active Substance: MYCOPHENOLATE MOFETIL
     Dosage: 1000 MG
     Route: 065
     Dates: start: 20250721, end: 20250721
  23. CELLCEPT [Concomitant]
     Active Substance: MYCOPHENOLATE MOFETIL
     Dosage: 1000 MG
     Route: 065
     Dates: start: 20250722, end: 20250722
  24. CELLCEPT [Concomitant]
     Active Substance: MYCOPHENOLATE MOFETIL
     Dosage: 1000 MG
     Route: 065
     Dates: start: 20250723, end: 20250723
  25. CELLCEPT [Concomitant]
     Active Substance: MYCOPHENOLATE MOFETIL
     Dosage: 1000 MG
     Route: 065
     Dates: start: 20250724, end: 20250724
  26. CELLCEPT [Concomitant]
     Active Substance: MYCOPHENOLATE MOFETIL
     Dosage: 1000 MG
     Route: 065
     Dates: start: 20250725, end: 20250725
  27. CELLCEPT [Concomitant]
     Active Substance: MYCOPHENOLATE MOFETIL
     Dosage: 1000 MG
     Route: 065
     Dates: start: 20250726, end: 20250726
  28. CELLCEPT [Concomitant]
     Active Substance: MYCOPHENOLATE MOFETIL
     Dosage: 1000 MG
     Route: 065
     Dates: start: 20250727, end: 20250727
  29. CELLCEPT [Concomitant]
     Active Substance: MYCOPHENOLATE MOFETIL
     Dosage: 1000 MG
     Route: 065
     Dates: start: 20250728, end: 20250728
  30. CELLCEPT [Concomitant]
     Active Substance: MYCOPHENOLATE MOFETIL
     Dosage: 1000 MG
     Route: 065
     Dates: start: 20250729, end: 20250729
  31. CELLCEPT [Concomitant]
     Active Substance: MYCOPHENOLATE MOFETIL
     Dosage: 1000 MG
     Route: 065
     Dates: start: 20250730, end: 20250730
  32. CELLCEPT [Concomitant]
     Active Substance: MYCOPHENOLATE MOFETIL
     Dosage: 1000 MG
     Route: 065
     Dates: start: 20250731, end: 20250731
  33. CELLCEPT [Concomitant]
     Active Substance: MYCOPHENOLATE MOFETIL
     Dosage: 1000 MG
     Route: 065
     Dates: start: 20250801, end: 20250801
  34. CELLCEPT [Concomitant]
     Active Substance: MYCOPHENOLATE MOFETIL
     Dosage: 1000 MG
     Route: 065
     Dates: start: 20250804, end: 20250804
  35. CELLCEPT [Concomitant]
     Active Substance: MYCOPHENOLATE MOFETIL
     Dosage: 1000 MG
     Route: 065
     Dates: start: 20250806, end: 20250810
  36. CELLCEPT [Concomitant]
     Active Substance: MYCOPHENOLATE MOFETIL
     Dosage: 1000 MG
     Route: 065
     Dates: start: 20250811, end: 20250815
  37. CELLCEPT [Concomitant]
     Active Substance: MYCOPHENOLATE MOFETIL
     Dosage: 1000 MG
     Route: 065
     Dates: start: 20250816, end: 20250820
  38. CELLCEPT [Concomitant]
     Active Substance: MYCOPHENOLATE MOFETIL
     Dosage: 1000 MG
     Route: 065
     Dates: start: 20250828, end: 20250828
  39. LANSOPRAZOLE [Concomitant]
     Active Substance: LANSOPRAZOLE
     Dosage: 15 MG, DAILY
     Route: 065
     Dates: start: 20250723
  40. PREVYMIS [Concomitant]
     Active Substance: LETERMOVIR
     Dosage: 480 MG, DAILY
     Route: 065
     Dates: start: 20250728
  41. SULFAMETHOXAZOLE\TRIMETHOPRIM [Concomitant]
     Active Substance: SULFAMETHOXAZOLE\TRIMETHOPRIM
     Dosage: 2 DF, TWICE A WEEK ON WEDNESDAY AND SATURDAY
     Route: 065
     Dates: start: 20250730
  42. SIMULECT [Concomitant]
     Active Substance: BASILIXIMAB
     Dosage: 10 MG
     Route: 065
     Dates: start: 20250718, end: 20250718
  43. SIMULECT [Concomitant]
     Active Substance: BASILIXIMAB
     Dosage: UNK
     Route: 065
     Dates: start: 20250723, end: 20250723
  44. CEFAZOLIN SODIUM [Concomitant]
     Active Substance: CEFAZOLIN SODIUM
     Dosage: UNK
     Route: 065
     Dates: start: 20250718
  45. ACETAMINOPHEN [Concomitant]
     Active Substance: ACETAMINOPHEN
     Dosage: UNK
     Route: 065
     Dates: start: 20250722
  46. LASIX [Concomitant]
     Active Substance: FUROSEMIDE
     Dosage: UNK
     Route: 065
     Dates: start: 20250722, end: 20250722
  47. LASIX [Concomitant]
     Active Substance: FUROSEMIDE
     Dosage: UNK
     Route: 065
     Dates: start: 20250723, end: 20250723

REACTIONS (1)
  - Diabetes mellitus [Recovering/Resolving]

NARRATIVE: CASE EVENT DATE: 20250725
